FAERS Safety Report 23511560 (Version 2)
Quarter: 2024Q2

REPORT INFORMATION
  Report Type: Spontaneous
  Country: GB (occurrence: GB)
  Receive Date: 20240212
  Receipt Date: 20240405
  Transmission Date: 20240716
  Serious: Yes (Other)
  Sender: FDA-Public Use
  Company Number: GB-PFIZER INC-202200018676

PATIENT
  Age: 65 Year
  Sex: Male

DRUGS (1)
  1. ENBREL [Suspect]
     Active Substance: ETANERCEPT
     Indication: Rheumatoid arthritis
     Dosage: 50 MG/ML, WEEKLY
     Route: 058

REACTIONS (5)
  - Carditis [Unknown]
  - Pneumonia [Unknown]
  - Influenza [Unknown]
  - Cardiac disorder [Unknown]
  - COVID-19 [Unknown]
